FAERS Safety Report 24082625 (Version 1)
Quarter: 2024Q3

REPORT INFORMATION
  Report Type: Report from Study
  Country: IE (occurrence: IE)
  Receive Date: 20240712
  Receipt Date: 20240712
  Transmission Date: 20241017
  Serious: Yes (Hospitalization)
  Sender: JOHNSON AND JOHNSON
  Company Number: IE-JNJFOC-20240721445

PATIENT
  Sex: Male

DRUGS (13)
  1. ZYTIGA [Suspect]
     Active Substance: ABIRATERONE ACETATE
     Indication: Prostate cancer metastatic
     Route: 048
     Dates: start: 20220711
  2. WARFARIN [Concomitant]
     Active Substance: WARFARIN
     Route: 050
  3. WARFARIN [Concomitant]
     Active Substance: WARFARIN
     Route: 050
  4. ROSUVASTATIN [Concomitant]
     Active Substance: ROSUVASTATIN
     Route: 050
  5. ESOMEPRAZOLE [Concomitant]
     Active Substance: ESOMEPRAZOLE
  6. AMLODIPINE [Concomitant]
     Active Substance: AMLODIPINE BESYLATE
     Route: 050
  7. VALSARTAN [Concomitant]
     Active Substance: VALSARTAN
     Route: 050
  8. SPASMONAL [ALVERINE CITRATE] [Concomitant]
     Route: 050
  9. ACETAMINOPHEN [Concomitant]
     Active Substance: ACETAMINOPHEN
     Route: 050
  10. PREDNISONE [Concomitant]
     Active Substance: PREDNISONE
     Route: 050
  11. CODIPAR [CODEINE PHOSPHATE;PARACETAMOL] [Concomitant]
     Route: 050
  12. BISOPROLOL FUMARATE [Concomitant]
     Active Substance: BISOPROLOL FUMARATE
     Route: 050
  13. AMIODARONE HYDROCHLORIDE [Concomitant]
     Active Substance: AMIODARONE HYDROCHLORIDE
     Route: 050

REACTIONS (1)
  - Shoulder operation [Recovered/Resolved]
